FAERS Safety Report 4278065-X (Version None)
Quarter: 2004Q1

REPORT INFORMATION
  Report Type: 
  Country: None (occurrence: None)
  Receive Date: 20040122
  Receipt Date: 20040105
  Transmission Date: 20041129
  Serious: Yes (Other)
  Sender: FDA-Public Use
  Company Number: USA031051152

PATIENT
  Age: 55 Year
  Sex: Female

DRUGS (5)
  1. FORTEO [Suspect]
     Indication: OSTEOPOROSIS
     Dates: start: 20030401, end: 20031011
  2. OXYCONTIN [Concomitant]
  3. SOMA [Concomitant]
  4. ZOFRAN [Concomitant]
  5. SYNTHROID [Concomitant]

REACTIONS (18)
  - ABDOMINAL PAIN UPPER [None]
  - APPETITE DISORDER [None]
  - ARRHYTHMIA [None]
  - ASTHENIA [None]
  - BALANCE DISORDER [None]
  - BONE DISORDER [None]
  - BONE NEOPLASM MALIGNANT [None]
  - DYSGEUSIA [None]
  - LIMB INJURY [None]
  - LOWER LIMB FRACTURE [None]
  - MALAISE [None]
  - MIGRAINE [None]
  - MUSCLE ATROPHY [None]
  - MUSCULOSKELETAL STIFFNESS [None]
  - NAUSEA [None]
  - PALPITATIONS [None]
  - SPINAL FUSION ACQUIRED [None]
  - WEIGHT DECREASED [None]
